FAERS Safety Report 23934541 (Version 3)
Quarter: 2024Q2

REPORT INFORMATION
  Report Type: Spontaneous
  Country: CN (occurrence: CN)
  Receive Date: 20240603
  Receipt Date: 20240620
  Transmission Date: 20240716
  Serious: Yes (Death, Other)
  Sender: FDA-Public Use
  Company Number: CN-BoehringerIngelheim-2024-BI-030213

PATIENT
  Age: 63 Year
  Sex: Male
  Weight: 62.0 kg

DRUGS (2)
  1. ALTEPLASE [Suspect]
     Active Substance: ALTEPLASE
     Indication: Cerebral infarction
     Route: 042
     Dates: start: 20240417, end: 20240417
  2. CAPTOPRIL [Concomitant]
     Active Substance: CAPTOPRIL

REACTIONS (6)
  - Drug hypersensitivity [Fatal]
  - Laryngeal oedema [Unknown]
  - Gingival bleeding [Unknown]
  - Atrial fibrillation [Unknown]
  - Coma [Unknown]
  - Seizure [Recovered/Resolved]

NARRATIVE: CASE EVENT DATE: 20240417
